FAERS Safety Report 5155088-X (Version None)
Quarter: 2006Q4

REPORT INFORMATION
  Report Type: 
  Country: None (occurrence: None)
  Receive Date: 20061121
  Receipt Date: 20061114
  Transmission Date: 20070319
  Serious: Yes (Hospitalization)
  Sender: FDA-Public Use
  Company Number: JP-GLAXOSMITHKLINE-B0446958A

PATIENT
  Age: 60 Year
  Sex: Male

DRUGS (3)
  1. EPIVIR [Suspect]
     Indication: HIV INFECTION
     Dosage: 150MG TWICE PER DAY
     Route: 048
     Dates: start: 20060712, end: 20060718
  2. STOCRIN [Suspect]
     Indication: HIV INFECTION
     Dosage: 200MG THREE TIMES PER DAY
     Route: 048
     Dates: start: 20060712, end: 20060718
  3. ZERIT [Suspect]
     Indication: HIV INFECTION
     Dosage: 15MG FOUR TIMES PER DAY
     Route: 048
     Dates: start: 20060712, end: 20060718

REACTIONS (5)
  - ANXIETY [None]
  - INSOMNIA [None]
  - MALAISE [None]
  - NAUSEA [None]
  - NIGHTMARE [None]
